FAERS Safety Report 5662905-3 (Version None)
Quarter: 2008Q1

REPORT INFORMATION
  Report Type: 
  Country: None (occurrence: None)
  Receive Date: 20080307
  Receipt Date: 20080226
  Transmission Date: 20080703
  Serious: Yes (Hospitalization, Other)
  Sender: FDA-Public Use
  Company Number: 163-21880-08020899

PATIENT
  Age: 75 Year
  Sex: Female

DRUGS (3)
  1. REVLIMID [Suspect]
     Indication: B-CELL LYMPHOMA
     Dosage: 25 MG, X 21 DAYS W/7 DAYS OFF, ORAL
     Route: 048
     Dates: start: 20080122, end: 20080213
  2. REVLIMID [Suspect]
  3. PREDNISONE TAB [Concomitant]

REACTIONS (15)
  - DEAFNESS UNILATERAL [None]
  - EAR PAIN [None]
  - GLOSSODYNIA [None]
  - LOCALISED INFECTION [None]
  - LYMPHADENOPATHY [None]
  - MALAISE [None]
  - NEUTROPENIA [None]
  - OEDEMA MOUTH [None]
  - ORAL MUCOSAL EXFOLIATION [None]
  - ORAL PAIN [None]
  - PULMONARY EMBOLISM [None]
  - PULMONARY THROMBOSIS [None]
  - TONGUE OEDEMA [None]
  - URINARY TRACT DISORDER [None]
  - WHITE BLOOD CELL COUNT DECREASED [None]
